FAERS Safety Report 11109092 (Version 1)
Quarter: 2015Q2

REPORT INFORMATION
  Report Type: Spontaneous
  Country: US (occurrence: None)
  Receive Date: 20150511
  Receipt Date: 20150511
  Transmission Date: 20150821
  Serious: No
  Sender: FDA-Public Use
  Company Number: None

PATIENT
  Age: 73 Year
  Sex: Male
  Weight: 95.26 kg

DRUGS (4)
  1. PREDISONE [Concomitant]
     Active Substance: PREDNISONE
  2. CHORLESTRAL [Concomitant]
  3. VITAMINS [Concomitant]
     Active Substance: VITAMINS
  4. SPIRIVA [Suspect]
     Active Substance: TIOTROPIUM BROMIDE MONOHYDRATE
     Indication: EMPHYSEMA
     Dosage: 1 CAPSULE PE DAY
     Route: 055
     Dates: start: 20150401, end: 20150430

REACTIONS (2)
  - Drug ineffective [None]
  - Product packaging quantity issue [None]
